FAERS Safety Report 4699236-4 (Version None)
Quarter: 2005Q2

REPORT INFORMATION
  Report Type: 
  Country: None (occurrence: None)
  Receive Date: 20050624
  Receipt Date: 20050201
  Transmission Date: 20051028
  Serious: Yes (Hospitalization)
  Sender: FDA-Public Use
  Company Number: US-MERCK-0502USA00244

PATIENT
  Age: 63 Year
  Sex: Male

DRUGS (18)
  1. VIOXX [Suspect]
     Indication: ARTHRITIS
     Route: 048
     Dates: start: 20000101, end: 20040901
  2. ASPIRIN [Concomitant]
     Route: 048
  3. PLAVIX [Concomitant]
     Route: 048
  4. LOVENOX [Concomitant]
     Route: 058
  5. LASIX [Concomitant]
     Route: 048
  6. PRINIVIL [Concomitant]
     Route: 048
  7. LOPRESSOR [Concomitant]
     Route: 048
  8. OXYCONTIN [Concomitant]
     Route: 048
  9. POTASSIUM (UNSPECIFIED) [Concomitant]
     Route: 048
  10. SENOKOT [Concomitant]
     Route: 065
  11. FLOMAX [Concomitant]
     Route: 048
  12. HYDROCHLOROTHIAZIDE [Concomitant]
     Route: 065
  13. ZESTRIL [Concomitant]
     Route: 048
  14. TOPROL-XL [Concomitant]
     Route: 065
  15. GLUCOSAMINE [Concomitant]
     Route: 065
  16. ZOCOR [Concomitant]
     Route: 048
  17. LORAZEPAM [Concomitant]
     Route: 065
  18. VITAMINS (UNSPECIFIED) [Concomitant]
     Route: 065

REACTIONS (23)
  - ACTIVITIES OF DAILY LIVING IMPAIRED [None]
  - ACUTE MYOCARDIAL INFARCTION [None]
  - ASTHENIA [None]
  - BUNDLE BRANCH BLOCK LEFT [None]
  - CARDIAC MURMUR [None]
  - CARDIOVASCULAR DECONDITIONING [None]
  - CHEST PAIN [None]
  - CORONARY ARTERY ATHEROSCLEROSIS [None]
  - CORONARY ARTERY DISEASE [None]
  - CORONARY ARTERY OCCLUSION [None]
  - DECREASED ACTIVITY [None]
  - DIZZINESS [None]
  - DRUG INTOLERANCE [None]
  - DYSPNOEA [None]
  - HAEMORRHOIDS [None]
  - HYPERLIPIDAEMIA [None]
  - INTERVERTEBRAL DISC DEGENERATION [None]
  - LUMBAR SPINAL STENOSIS [None]
  - OEDEMA [None]
  - OEDEMA PERIPHERAL [None]
  - OSTEOARTHRITIS [None]
  - PAIN IN EXTREMITY [None]
  - VENTRICULAR TACHYCARDIA [None]
